FAERS Safety Report 4815211-0 (Version None)
Quarter: 2005Q4

REPORT INFORMATION
  Report Type: 
  Country: None (occurrence: None)
  Receive Date: 20051028
  Receipt Date: 20050707
  Transmission Date: 20060501
  Serious: Yes (Hospitalization)
  Sender: FDA-Public Use
  Company Number: US-MERCK-0507USA01233

PATIENT
  Age: 47 Year
  Sex: Female
  Weight: 56 kg

DRUGS (3)
  1. VIOXX [Suspect]
     Indication: BACK PAIN
     Route: 048
     Dates: start: 20030601, end: 20030701
  2. VIOXX [Suspect]
     Indication: FOOT FRACTURE
     Route: 048
     Dates: start: 20030601, end: 20030701
  3. SYNTHROID [Concomitant]
     Indication: THYROID DISORDER
     Route: 065

REACTIONS (19)
  - ATRIAL FIBRILLATION [None]
  - ATRIAL THROMBOSIS [None]
  - BREAST MASS [None]
  - CEREBRAL HAEMORRHAGE [None]
  - CEREBROVASCULAR ACCIDENT [None]
  - COMA [None]
  - DEPRESSION [None]
  - DYSPNOEA [None]
  - EMBOLISM [None]
  - INSOMNIA [None]
  - MITRAL VALVE STENOSIS [None]
  - OEDEMA PERIPHERAL [None]
  - PERIPHERAL COLDNESS [None]
  - PNEUMONIA [None]
  - POST-TRAUMATIC STRESS DISORDER [None]
  - TEMPERATURE INTOLERANCE [None]
  - TRANSIENT ISCHAEMIC ATTACK [None]
  - URINARY TRACT INFECTION [None]
  - VERTIGO [None]
